FAERS Safety Report 9316147 (Version 1)
Quarter: 2013Q2

REPORT INFORMATION
  Report Type: Spontaneous
  Country: CN (occurrence: CN)
  Receive Date: 20130530
  Receipt Date: 20130530
  Transmission Date: 20140414
  Serious: Yes (Other)
  Sender: FDA-Public Use
  Company Number: CN-ABBOTT-13X-035-1096241-00

PATIENT
  Age: 12 Year
  Sex: Male

DRUGS (1)
  1. DEPAKINE CHRONO [Suspect]
     Indication: EPILEPSY
     Route: 048
     Dates: start: 20120825, end: 20120825

REACTIONS (3)
  - Muscle spasms [Unknown]
  - Convulsion [Recovered/Resolved]
  - Muscle twitching [Unknown]
